FAERS Safety Report 8440678 (Version 5)
Quarter: 2013Q4

REPORT INFORMATION
  Report Type: Spontaneous
  Country: US (occurrence: US)
  Receive Date: 20120305
  Receipt Date: 20131105
  Transmission Date: 20140711
  Serious: Yes (Other)
  Sender: FDA-Public Use
  Company Number: US-ROCHE-1020267

PATIENT
  Age: 46 Year
  Sex: Female
  Weight: 54.48 kg

DRUGS (3)
  1. ACCUTANE [Suspect]
     Indication: ACNE
     Route: 065
     Dates: start: 1982
  2. ACCUTANE [Suspect]
     Route: 065
     Dates: start: 1997
  3. ACCUTANE [Suspect]
     Route: 065
     Dates: start: 1998

REACTIONS (8)
  - Colitis ulcerative [Unknown]
  - Depression [Unknown]
  - Inflammatory bowel disease [Unknown]
  - Anal polyp [Unknown]
  - Rectal fissure [Unknown]
  - Irritable bowel syndrome [Unknown]
  - Acne [Unknown]
  - Arthritis [Unknown]
